FAERS Safety Report 16358731 (Version 2)
Quarter: 2019Q3

REPORT INFORMATION
  Report Type: Report from Study
  Country: GB (occurrence: GB)
  Receive Date: 20190527
  Receipt Date: 20190704
  Transmission Date: 20191004
  Serious: Yes (Hospitalization)
  Sender: FDA-Public Use
  Company Number: PHHY2019GB121407

PATIENT
  Sex: Female
  Weight: 58.2 kg

DRUGS (5)
  1. CITALOPRAM [Concomitant]
     Active Substance: CITALOPRAM HYDROBROMIDE
     Indication: DEPRESSION
     Dosage: 20 MG, QD
     Route: 048
     Dates: start: 20180801
  2. FEXOFENADINE [Concomitant]
     Active Substance: FEXOFENADINE HYDROCHLORIDE
     Indication: URTICARIA
     Dosage: 180 MG, PRN
     Route: 048
     Dates: start: 2010
  3. COSENTYX [Suspect]
     Active Substance: SECUKINUMAB
     Dosage: 300 MG, Q4W
     Route: 058
     Dates: start: 20181231
  4. CITALOPRAM [Concomitant]
     Active Substance: CITALOPRAM HYDROBROMIDE
     Indication: ANXIETY
  5. COSENTYX [Suspect]
     Active Substance: SECUKINUMAB
     Indication: PSORIASIS
     Dosage: 300 MG, QMO (PREFILLED PEN)
     Route: 058
     Dates: start: 20181219

REACTIONS (7)
  - Lower respiratory tract infection [Recovered/Resolved]
  - Hot flush [Unknown]
  - Malaise [Not Recovered/Not Resolved]
  - Sinusitis [Recovered/Resolved]
  - Eye infection [Recovered/Resolved]
  - Hyperhidrosis [Unknown]
  - Feeling cold [Unknown]
